FAERS Safety Report 11240978 (Version 2)
Quarter: 2019Q2

REPORT INFORMATION
  Report Type: Spontaneous
  Country: MY (occurrence: MY)
  Receive Date: 20150706
  Receipt Date: 20190624
  Transmission Date: 20190711
  Serious: Yes (Hospitalization)
  Sender: FDA-Public Use
  Company Number: MY-RB PHARMACEUTICALS LIMITED-RB-080911-2015

PATIENT

DRUGS (2)
  1. BUPRENORPHINE. [Suspect]
     Active Substance: BUPRENORPHINE
     Indication: DRUG DEPENDENCE
     Dosage: ONE 8 MG TABLET EVERY DAY DURING THE FIRST WEEK OF MAINTENANCE
     Route: 060
  2. BUPRENORPHINE. [Suspect]
     Active Substance: BUPRENORPHINE
     Dosage: TWO 8 MG TABLETS EVERY MONDAY AND WEDNESDAY AND THREE 8 MG TABLETS EVERY FRIDAY
     Route: 060

REACTIONS (1)
  - Hospitalisation [Unknown]
